FAERS Safety Report 10155336 (Version 1)
Quarter: 2014Q2

REPORT INFORMATION
  Report Type: Spontaneous
  Country: FR (occurrence: FR)
  Receive Date: 20140506
  Receipt Date: 20140506
  Transmission Date: 20141212
  Serious: Yes (Hospitalization)
  Sender: FDA-Public Use
  Company Number: PHHY2014FR053046

PATIENT
  Age: 62 Year
  Sex: Male

DRUGS (13)
  1. ESIDREX [Suspect]
     Dosage: UNK UKN, UNK
     Route: 048
     Dates: start: 20140305, end: 20140311
  2. LASILIX [Concomitant]
     Dosage: UNK UKN, UNK
  3. TAHOR [Concomitant]
     Dosage: UNK UKN, UNK
  4. NEURONTIN [Concomitant]
     Dosage: UNK UKN, UNK
  5. KARDEGIC [Concomitant]
     Dosage: UNK UKN, UNK
  6. PLAVIX [Concomitant]
     Dosage: UNK UKN, UNK
  7. MOPRAL [Concomitant]
     Dosage: UNK UKN, UNK
  8. SECTRAL [Concomitant]
     Dosage: UNK UKN, UNK
     Dates: end: 20140310
  9. NOVOMIX [Concomitant]
     Dosage: UNK UKN, UNK
  10. AERIUS [Concomitant]
     Dosage: UNK UKN, UNK
  11. LOVENOX [Concomitant]
     Dosage: UNK UKN, UNK
     Dates: start: 20140305
  12. DIFFU K [Concomitant]
     Dosage: UNK UKN, UNK
     Dates: start: 20140305
  13. CARDENSIEL [Concomitant]

REACTIONS (1)
  - Rash maculo-papular [Recovered/Resolved]
